FAERS Safety Report 10170125 (Version 1)
Quarter: 2014Q2

REPORT INFORMATION
  Report Type: Spontaneous
  Country: FR (occurrence: FR)
  Receive Date: 20140513
  Receipt Date: 20140513
  Transmission Date: 20141212
  Serious: Yes (Hospitalization)
  Sender: FDA-Public Use
  Company Number: FR-GLAXOSMITHKLINE-B0991398A

PATIENT
  Age: 70 Year
  Sex: Male

DRUGS (22)
  1. ZINNAT INJECTABLE [Suspect]
     Indication: ANTIBIOTIC PROPHYLAXIS
     Route: 042
     Dates: start: 20120903, end: 20120903
  2. HEPARINE SODIUM [Suspect]
     Indication: EXTRACORPOREAL CIRCULATION
     Route: 042
     Dates: start: 20120903, end: 20120903
  3. PAROXETINE [Suspect]
     Indication: PRODUCT USED FOR UNKNOWN INDICATION
     Dosage: 20MG PER DAY
     Route: 048
  4. KETAMINE [Suspect]
     Indication: ANAESTHESIA
     Route: 042
     Dates: start: 20120903, end: 20120903
  5. ESMERON [Suspect]
     Indication: ANAESTHESIA
     Route: 042
     Dates: start: 20120903, end: 20120903
  6. PROTAMINE [Suspect]
     Indication: HEPARIN NEUTRALISATION THERAPY
     Route: 042
     Dates: start: 20120903, end: 20120903
  7. EXACYL [Suspect]
     Indication: HAEMORRHAGE PROPHYLAXIS
     Route: 042
     Dates: start: 20120903, end: 20120903
  8. ATARAX [Suspect]
     Indication: ANXIETY
     Route: 048
     Dates: start: 20120902, end: 20120903
  9. GABAPENTIN [Suspect]
     Indication: PRODUCT USED FOR UNKNOWN INDICATION
     Dosage: 600MG SINGLE DOSE
     Route: 048
     Dates: start: 20120903, end: 20120903
  10. MIDAZOLAM [Suspect]
     Indication: ANAESTHESIA
     Route: 042
     Dates: start: 20120903, end: 20120903
  11. ULTIVA [Suspect]
     Indication: ANAESTHESIA
     Route: 042
     Dates: start: 20120903, end: 20120903
  12. PROPOFOL [Suspect]
     Indication: ANAESTHESIA
     Route: 042
     Dates: start: 20120903, end: 20120903
  13. TADENAN [Suspect]
     Indication: MICTURITION DISORDER
     Dosage: 50MG TWICE PER DAY
     Route: 048
     Dates: end: 20120903
  14. TANAKAN [Suspect]
     Indication: COGNITIVE DISORDER
     Dosage: 40MG THREE TIMES PER DAY
     Route: 048
     Dates: end: 20120903
  15. LEXOMIL [Suspect]
     Indication: ANXIETY
     Dosage: 1.5MG PER DAY
     Route: 048
     Dates: end: 20120903
  16. INEXIUM [Concomitant]
     Indication: OESOPHAGEAL ULCER
     Dosage: 40MG PER DAY
     Route: 048
     Dates: start: 20120902, end: 20120922
  17. LACTULOSE [Concomitant]
     Route: 065
  18. ZOCOR [Concomitant]
     Dosage: 20MG PER DAY
     Route: 065
  19. VITAMIN B1 B6 [Concomitant]
     Route: 065
     Dates: start: 20120831
  20. DUPHALAC [Concomitant]
     Dates: start: 20120902
  21. CHARCOAL [Concomitant]
  22. LAXATIVE [Concomitant]

REACTIONS (4)
  - Incision site haemorrhage [Recovered/Resolved]
  - Pericardial haemorrhage [Recovered/Resolved]
  - Cardiac tamponade [Recovered/Resolved]
  - Cardio-respiratory arrest [Recovered/Resolved with Sequelae]
